FAERS Safety Report 14635680 (Version 1)
Quarter: 2018Q1

REPORT INFORMATION
  Report Type: Report from Study
  Country: CA (occurrence: CA)
  Receive Date: 20180314
  Receipt Date: 20180314
  Transmission Date: 20180509
  Serious: Yes (Life-Threatening)
  Sender: FDA-Public Use
  Company Number: CA-HLSUS-2018-CA-000396

PATIENT
  Age: 20 Year
  Sex: Male
  Weight: 65 kg

DRUGS (3)
  1. OLANZAPINE. [Concomitant]
     Active Substance: OLANZAPINE
     Indication: PRODUCT USED FOR UNKNOWN INDICATION
     Dosage: 20.0 MG ONCE A DAY
     Route: 048
  2. SODIUM VALPROATE [Concomitant]
     Active Substance: VALPROATE SODIUM
     Dosage: 750.0 MG 2 EVERY ONE DAY
     Route: 048
  3. CLOZAPINE. [Suspect]
     Active Substance: CLOZAPINE
     Indication: SCHIZOPHRENIA
     Dosage: 100 MG 2 EVERY ONE DAY
     Route: 048

REACTIONS (3)
  - Platelet count decreased [Unknown]
  - Myocarditis [Unknown]
  - Fibrin D dimer increased [Unknown]
